FAERS Safety Report 7033340-0 (Version None)
Quarter: 2010Q4

REPORT INFORMATION
  Report Type: 
  Country: None (occurrence: None)
  Receive Date: 20101004
  Receipt Date: 20100522
  Transmission Date: 20110411
  Serious: Yes (Other)
  Sender: FDA-Public Use
  Company Number: ACO_00825_2010

PATIENT
  Sex: Female
  Weight: 40.8237 kg

DRUGS (3)
  1. AMPYRA [Suspect]
     Indication: GAIT DISTURBANCE
     Dosage: (10 MG BID ORAL), (10 MG QD ORAL)
     Route: 048
     Dates: start: 20100422, end: 20100503
  2. AMPYRA [Suspect]
     Indication: GAIT DISTURBANCE
     Dosage: (10 MG BID ORAL), (10 MG QD ORAL)
     Route: 048
     Dates: start: 20100101, end: 20100628
  3. TYSABRI [Concomitant]

REACTIONS (7)
  - AGITATION [None]
  - AMNESIA [None]
  - CONFUSIONAL STATE [None]
  - DIZZINESS [None]
  - DRUG PRESCRIBING ERROR [None]
  - FEELING ABNORMAL [None]
  - TOXIC ENCEPHALOPATHY [None]
